FAERS Safety Report 6062945-9 (Version None)
Quarter: 2009Q1

REPORT INFORMATION
  Report Type: 
  Country: None (occurrence: None)
  Receive Date: 20090203
  Receipt Date: 20090129
  Transmission Date: 20090719
  Serious: Yes (Congenital Anomaly)
  Sender: FDA-Public Use
  Company Number: A0747575A

PATIENT
  Sex: Female

DRUGS (1)
  1. PAXIL [Suspect]
     Indication: DEPRESSION

REACTIONS (5)
  - DRUG EXPOSURE DURING PREGNANCY [None]
  - ECTOPIC URETER [None]
  - HYDRONEPHROSIS [None]
  - MULTIPLE CONGENITAL ABNORMALITIES [None]
  - URINARY TRACT INFECTION [None]
